FAERS Safety Report 12237863 (Version 1)
Quarter: 2016Q2

REPORT INFORMATION
  Report Type: Spontaneous
  Country: US (occurrence: None)
  Receive Date: 20160404
  Receipt Date: 20160404
  Transmission Date: 20160815
  Serious: Yes (Hospitalization, Other)
  Sender: FDA-Public Use
  Company Number: None

PATIENT
  Age: 77 Year
  Sex: Male
  Weight: 112.5 kg

DRUGS (2)
  1. ALBUTEROL. [Suspect]
     Active Substance: ALBUTEROL
     Indication: ATRIAL FIBRILLATION
     Dosage: MCG INHALE
     Route: 055
     Dates: start: 20160104, end: 20160121
  2. ALBUTEROL. [Suspect]
     Active Substance: ALBUTEROL
     Indication: UPPER RESPIRATORY TRACT INFECTION
     Dosage: MCG INHALE
     Route: 055
     Dates: start: 20160104, end: 20160121

REACTIONS (3)
  - Tachycardia [None]
  - Atrial fibrillation [None]
  - Pneumonia [None]

NARRATIVE: CASE EVENT DATE: 20160121
